FAERS Safety Report 7488216-1 (Version None)
Quarter: 2011Q2

REPORT INFORMATION
  Report Type: 
  Country: None (occurrence: None)
  Receive Date: 20110518
  Receipt Date: 20110514
  Transmission Date: 20111010
  Serious: Yes (Death, Hospitalization, Other)
  Sender: FDA-Public Use
  Company Number: PHHY2011MX38113

PATIENT
  Sex: Female

DRUGS (2)
  1. ZELMAC [Suspect]
     Indication: IRRITABLE BOWEL SYNDROME
     Dosage: 2 TABLET DAILY
     Route: 048
     Dates: start: 20090623, end: 20101004
  2. SENNOSIDES A+B [Concomitant]
     Dosage: UNK

REACTIONS (10)
  - HYPOVOLAEMIC SHOCK [None]
  - FEMUR FRACTURE [None]
  - METABOLIC ACIDOSIS [None]
  - GASTROINTESTINAL HAEMORRHAGE [None]
  - DIVERTICULUM [None]
  - FALL [None]
  - GAIT DISTURBANCE [None]
  - DEPRESSION [None]
  - MOOD ALTERED [None]
  - DECREASED APPETITE [None]
